FAERS Safety Report 20071201 (Version 1)
Quarter: 2021Q4

REPORT INFORMATION
  Report Type: Spontaneous
  Country: CN (occurrence: CN)
  Receive Date: 20211115
  Receipt Date: 20211115
  Transmission Date: 20220303
  Serious: Yes (Disabling)
  Sender: FDA-Public Use
  Company Number: CN-BAXTER-2021BAX035482

PATIENT
  Age: 50 Year
  Sex: Female
  Weight: 53 kg

DRUGS (6)
  1. CYCLOPHOSPHAMIDE [Suspect]
     Active Substance: CYCLOPHOSPHAMIDE
     Indication: Breast cancer female
     Dosage: INTRA-PUMP INJECTION?SALINE 40ML + CYCLOPHOSPHAMIDE 0.8G
     Route: 042
     Dates: start: 20211026, end: 20211026
  2. CYCLOPHOSPHAMIDE [Suspect]
     Active Substance: CYCLOPHOSPHAMIDE
     Dosage: DOSE REINTRODUCED
     Route: 042
  3. SODIUM CHLORIDE [Suspect]
     Active Substance: SODIUM CHLORIDE
     Indication: Medication dilution
     Dosage: SALINE 40ML + CYCLOPHOSPHAMIDE 0.8G
     Route: 065
  4. SODIUM CHLORIDE [Suspect]
     Active Substance: SODIUM CHLORIDE
     Dosage: SALINE 250ML + DOCETAXEL 110MG
     Route: 065
  5. DOCETAXEL [Suspect]
     Active Substance: DOCETAXEL
     Indication: Breast cancer female
     Dosage: SALINE 250ML + DOCETAXEL 110MG
     Route: 041
     Dates: start: 20211026, end: 20211026
  6. DOCETAXEL [Suspect]
     Active Substance: DOCETAXEL
     Dosage: DOSE REINTRODUCED
     Route: 041

REACTIONS (3)
  - White blood cell count decreased [Recovered/Resolved]
  - Neutrophil count decreased [Recovered/Resolved]
  - Pruritus [Recovered/Resolved]

NARRATIVE: CASE EVENT DATE: 20211102
